FAERS Safety Report 4358817-8 (Version None)
Quarter: 2004Q2

REPORT INFORMATION
  Report Type: 
  Country: None (occurrence: None)
  Receive Date: 20040512
  Receipt Date: 20040503
  Transmission Date: 20050107
  Serious: Yes (Death, Life-Threatening, Hospitalization, Other)
  Sender: FDA-Public Use
  Company Number: 2004-04-0055

PATIENT
  Age: 63 Year
  Sex: Male

DRUGS (6)
  1. TEMODAL [Suspect]
     Indication: GLIOBLASTOMA
     Dosage: 270 MG QD ORAL
     Route: 048
     Dates: start: 20040305, end: 20040309
  2. FORTECORTIN [Concomitant]
  3. DECADRON [Concomitant]
  4. NEOSIDANTOINA [Concomitant]
  5. NPH INSULIN [Concomitant]
  6. OMEPRAZOLE [Concomitant]

REACTIONS (20)
  - ANAEMIA [None]
  - ASTHENIA [None]
  - BLOOD GLUCOSE INCREASED [None]
  - BONE MARROW DEPRESSION [None]
  - CEREBELLAR SYNDROME [None]
  - COMA [None]
  - DISORIENTATION [None]
  - EPISTAXIS [None]
  - HAEMORRHAGE [None]
  - HEMIPARESIS [None]
  - HYPOREFLEXIA [None]
  - LEUKOPENIA [None]
  - LOSS OF CONSCIOUSNESS [None]
  - NEUTROPENIA [None]
  - PURPURA [None]
  - PYREXIA [None]
  - RED BLOOD CELL COUNT DECREASED [None]
  - RHONCHI [None]
  - THROMBOCYTOPENIA [None]
  - THROMBOSIS [None]
